FAERS Safety Report 8814431 (Version 3)
Quarter: 2012Q4

REPORT INFORMATION
  Report Type: 
  Country: IT (occurrence: IT)
  Receive Date: 20120928
  Receipt Date: 20121031
  Transmission Date: 20130627
  Serious: Yes (Other)
  Sender: FDA-Public Use
  Company Number: PHHY2012IT082905

PATIENT
  Age: 3 Year
  Sex: Male
  Weight: 14 kg

DRUGS (2)
  1. EXJADE [Suspect]
     Indication: THALASSAEMIA
     Dosage: 2 g, daily
  2. EXJADE [Suspect]
     Dosage: 36 mg/kg per day
     Route: 048

REACTIONS (13)
  - Coma [Recovered/Resolved]
  - Acute hepatic failure [Recovered/Resolved]
  - Reye^s syndrome [Recovered/Resolved]
  - Somnolence [Unknown]
  - Thalassaemia beta [Recovered/Resolved]
  - Renal failure [Recovered/Resolved]
  - Prescribed overdose [Unknown]
  - Dehydration [Recovered/Resolved]
  - Sopor [Recovered/Resolved]
  - Serum ferritin increased [Unknown]
  - Blood lactate dehydrogenase increased [Unknown]
  - White blood cell count increased [Unknown]
  - Infection [Unknown]
